FAERS Safety Report 15030087 (Version 10)
Quarter: 2020Q2

REPORT INFORMATION
  Report Type: Spontaneous
  Country: HU (occurrence: HU)
  Receive Date: 20180619
  Receipt Date: 20200430
  Transmission Date: 20200713
  Serious: Yes (Death, Hospitalization, Other)
  Sender: FDA-Public Use
  Company Number: HU-CELGENEUS-HUN-20180602098

PATIENT
  Age: 84 Year
  Sex: Male
  Weight: 48 kg

DRUGS (13)
  1. VENETOCLAX. [Concomitant]
     Active Substance: VENETOCLAX
     Indication: ACUTE MYELOID LEUKAEMIA
     Dosage: 100 MILLIGRAM
     Route: 048
     Dates: start: 20180417, end: 20180417
  2. VENETOCLAX. [Concomitant]
     Active Substance: VENETOCLAX
     Dosage: 400 MILLIGRAM
     Route: 048
     Dates: start: 20180419, end: 20180531
  3. ALLOPURINOL. [Concomitant]
     Active Substance: ALLOPURINOL
     Indication: PROPHYLAXIS
     Route: 048
     Dates: start: 20180407, end: 20180423
  4. NIVESTIM [Concomitant]
     Active Substance: FILGRASTIM
     Dosage: 48000000 IU (INTERNATIONAL UNIT)
     Route: 058
     Dates: start: 20180427, end: 20180427
  5. NIVESTIM [Concomitant]
     Active Substance: FILGRASTIM
     Dosage: 48000000 IU (INTERNATIONAL UNIT)
     Route: 058
     Dates: start: 20180502, end: 20180514
  6. NIVESTIM [Concomitant]
     Active Substance: FILGRASTIM
     Dosage: 48000000 IU (INTERNATIONAL UNIT)
     Route: 058
     Dates: start: 20180515
  7. VENETOCLAX. [Concomitant]
     Active Substance: VENETOCLAX
     Dosage: 200 MILLIGRAM
     Route: 048
     Dates: start: 20180418, end: 20180418
  8. MERONEM [Concomitant]
     Active Substance: MEROPENEM
     Indication: PNEUMONIA
     Route: 065
     Dates: start: 20180407, end: 20180416
  9. CONTROLOC [Concomitant]
     Active Substance: PANTOPRAZOLE SODIUM
     Indication: PROPHYLAXIS AGAINST GASTROINTESTINAL ULCER
     Dosage: 40 MILLIGRAM
     Route: 048
     Dates: start: 20180313, end: 20180604
  10. AZACITIDINE INJECTABLE [Suspect]
     Active Substance: AZACITIDINE
     Indication: ACUTE MYELOID LEUKAEMIA
     Dosage: 75 MILLIGRAM/SQ. METER
     Route: 058
     Dates: start: 20180417, end: 20180522
  11. NIVESTIM [Concomitant]
     Active Substance: FILGRASTIM
     Indication: NEUTROPENIA
     Dosage: 48000000 IU (INTERNATIONAL UNIT)
     Route: 058
     Dates: start: 20180419, end: 20180420
  12. OMNIC TOCAS [Concomitant]
     Active Substance: TAMSULOSIN HYDROCHLORIDE
     Indication: BENIGN PROSTATIC HYPERPLASIA
     Dosage: 0.4 MILLIGRAM
     Route: 048
     Dates: start: 20050629
  13. AMIKIN [Concomitant]
     Active Substance: AMIKACIN SULFATE
     Indication: PNEUMONIA
     Route: 065
     Dates: start: 20180419, end: 20180502

REACTIONS (1)
  - Pneumonia [Fatal]

NARRATIVE: CASE EVENT DATE: 20180531
